FAERS Safety Report 14777389 (Version 3)
Quarter: 2018Q2

REPORT INFORMATION
  Report Type: Spontaneous
  Country: DE (occurrence: DE)
  Receive Date: 20180419
  Receipt Date: 20180612
  Transmission Date: 20180711
  Serious: Yes (Other)
  Sender: FDA-Public Use
  Company Number: DE-TEVA-2018-DE-883518

PATIENT
  Age: 84 Year
  Sex: Female

DRUGS (4)
  1. LEVOFLOXACIN RATIOPHARM 500 MG FILMTABLETTEN [Suspect]
     Active Substance: LEVOFLOXACIN
     Indication: URINARY TRACT INFECTION
     Dosage: 500 MILLIGRAM DAILY;
     Route: 048
     Dates: start: 201404
  2. ASS 100 [Concomitant]
     Active Substance: ASPIRIN
     Route: 065
  3. LISINOPRIL. [Concomitant]
     Active Substance: LISINOPRIL
     Route: 065
  4. VOMEX A [Concomitant]
     Active Substance: DIMENHYDRINATE
     Route: 065

REACTIONS (7)
  - Nausea [Unknown]
  - Visual impairment [Unknown]
  - Deafness [Unknown]
  - Mental disorder [Not Recovered/Not Resolved]
  - Tendon discomfort [Not Recovered/Not Resolved]
  - Asthenia [Unknown]
  - Oedema peripheral [Unknown]

NARRATIVE: CASE EVENT DATE: 2014
